FAERS Safety Report 20062116 (Version 1)
Quarter: 2021Q4

REPORT INFORMATION
  Report Type: Spontaneous
  Country: US (occurrence: US)
  Receive Date: 20211112
  Receipt Date: 20211112
  Transmission Date: 20220303
  Serious: No
  Sender: FDA-Public Use
  Company Number: US-drreddys-SPO/USA/21/0143684

PATIENT
  Age: 21 Year
  Sex: Female

DRUGS (1)
  1. ZENATANE [Suspect]
     Active Substance: ISOTRETINOIN
     Indication: Product used for unknown indication
     Dosage: RMA ISSUE DATE:1 MAY 2021 10:09:27 AM,8 FEBRUARY 2021 9:04:24 AM,12 MAY 2021 10:30:14 AM,23 JUNE 202
     Dates: start: 20210105, end: 20211109

REACTIONS (1)
  - Treatment noncompliance [Unknown]
